FAERS Safety Report 6190185-1 (Version None)
Quarter: 2009Q2

REPORT INFORMATION
  Report Type: 
  Country: None (occurrence: None)
  Receive Date: 20090514
  Receipt Date: 20090504
  Transmission Date: 20091009
  Serious: Yes (Hospitalization)
  Sender: FDA-Public Use
  Company Number: US-ELI_LILLY_AND_COMPANY-US200905000749

PATIENT
  Sex: Male

DRUGS (2)
  1. CYMBALTA [Suspect]
     Indication: DIABETIC NEUROPATHY
     Dosage: 60 MG, UNK
     Route: 048
     Dates: start: 20040101
  2. INSULIN [Concomitant]

REACTIONS (4)
  - DEMENTIA [None]
  - MOBILITY DECREASED [None]
  - PARKINSONIAN GAIT [None]
  - PARKINSONIAN REST TREMOR [None]
